FAERS Safety Report 7918366-4 (Version None)
Quarter: 2011Q4

REPORT INFORMATION
  Report Type: 
  Country: None (occurrence: None)
  Receive Date: 20111116
  Receipt Date: 20111103
  Transmission Date: 20120403
  Serious: Yes (Hospitalization, Other)
  Sender: FDA-Public Use
  Company Number: US-ELI_LILLY_AND_COMPANY-US201110003607

PATIENT
  Sex: Male
  Weight: 84.354 kg

DRUGS (22)
  1. ADCIRCA [Suspect]
     Indication: PULMONARY ARTERIAL HYPERTENSION
     Dosage: 40 MG, QD
     Route: 048
     Dates: start: 20110615
  2. FLONASE [Concomitant]
     Dosage: UNK
  3. LECITHIN [Concomitant]
  4. MUCINEX DM [Concomitant]
  5. ADVAIR DISKUS 100/50 [Concomitant]
  6. BENICAR HCT [Concomitant]
     Dosage: UNK
  7. GENTAMICIN [Concomitant]
     Route: 055
  8. ADCIRCA [Suspect]
     Dosage: 20 MG, BID
  9. TRACLEER [Concomitant]
  10. ALLEGRA [Concomitant]
     Dosage: 180 MG, QD
  11. PROAIR HFA [Concomitant]
  12. LANOXIN [Concomitant]
     Dosage: 0.25 MG, UNK
  13. ASCORBIC ACID [Concomitant]
     Dosage: 1000 MG, UNK
  14. LASIX [Concomitant]
     Dosage: 40 MG, UNK
  15. AUGMENTIN '125' [Concomitant]
  16. COREG [Concomitant]
     Dosage: 12.5 MG, UNK
  17. ALDACTONE [Concomitant]
     Dosage: 25 MG, UNK
  18. COUMADIN [Concomitant]
     Dosage: 3 MG, UNK
  19. OXYCODONE HCL AND ACETAMINOPHEN [Concomitant]
  20. CARDIZEM CD [Concomitant]
  21. ASPIRIN [Concomitant]
     Dosage: 81 MG, QD
  22. LIDOCAINE [Concomitant]
     Route: 055

REACTIONS (2)
  - DEAFNESS [None]
  - HERNIA [None]
